FAERS Safety Report 25402932 (Version 2)
Quarter: 2025Q2

REPORT INFORMATION
  Report Type: Report from Study
  Country: CA (occurrence: CA)
  Receive Date: 20250605
  Receipt Date: 20250617
  Transmission Date: 20250717
  Serious: Yes (Hospitalization)
  Sender: NOVARTIS
  Company Number: CA-002147023-NVSC2024CA206829

PATIENT
  Age: 70 Year
  Sex: Female

DRUGS (3)
  1. FEMARA [Suspect]
     Active Substance: LETROZOLE
     Indication: Breast cancer metastatic
     Route: 048
  2. KISQALI [Suspect]
     Active Substance: RIBOCICLIB SUCCINATE
     Indication: Breast cancer metastatic
     Dosage: 600 MG, QD
     Route: 048
     Dates: start: 20241026
  3. KISQALI [Suspect]
     Active Substance: RIBOCICLIB SUCCINATE
     Dosage: 400 MG, QD
     Route: 048
     Dates: start: 20250606

REACTIONS (20)
  - Hepatic enzyme increased [Recovered/Resolved]
  - Artery dissection [Recovering/Resolving]
  - Haemorrhage [Unknown]
  - Insomnia [Unknown]
  - Arthralgia [Unknown]
  - Myalgia [Unknown]
  - Alopecia [Unknown]
  - Mood altered [Unknown]
  - Gait disturbance [Unknown]
  - Hair growth abnormal [Unknown]
  - Constipation [Recovered/Resolved]
  - Dysphonia [Unknown]
  - Pain [Recovered/Resolved]
  - Mood swings [Recovered/Resolved]
  - Restlessness [Recovered/Resolved]
  - Nasopharyngitis [Recovered/Resolved]
  - Rhinorrhoea [Recovering/Resolving]
  - Cough [Recovering/Resolving]
  - Throat clearing [Unknown]
  - Inappropriate schedule of product administration [Unknown]
